FAERS Safety Report 14302366 (Version 1)
Quarter: 2017Q4

REPORT INFORMATION
  Report Type: Spontaneous
  Country: US (occurrence: US)
  Receive Date: 20171219
  Receipt Date: 20171219
  Transmission Date: 20180321
  Serious: No
  Sender: FDA-Public Use
  Company Number: US-SUPERNUS PHARMACEUTICALS, INC.-2017SUP00077

PATIENT
  Sex: Female

DRUGS (1)
  1. TROKENDI XR [Suspect]
     Active Substance: TOPIRAMATE
     Indication: MIGRAINE
     Dosage: UNK
     Route: 048
     Dates: start: 201501

REACTIONS (6)
  - Aura [Unknown]
  - Nasal congestion [Unknown]
  - Pain [Unknown]
  - Off label use [Unknown]
  - Pupils unequal [Unknown]
  - Neck pain [Unknown]
